FAERS Safety Report 23711567 (Version 1)
Quarter: 2024Q2

REPORT INFORMATION
  Report Type: Spontaneous
  Country: US (occurrence: None)
  Receive Date: 20240404
  Receipt Date: 20240404
  Transmission Date: 20240716
  Serious: No
  Sender: FDA-Public Use
  Company Number: None

PATIENT
  Age: 67 Year
  Sex: Female

DRUGS (11)
  1. GLATIRAMER [Suspect]
     Active Substance: GLATIRAMER
     Indication: Multiple sclerosis
     Dosage: OTHER QUANTITY : 1 SYRINGE (40 MG);?FREQUENCY : 3 TIMES A WEEK;?
     Route: 058
     Dates: start: 20180306
  2. ALPRAZOLAM [Concomitant]
  3. ASPIRIN [Concomitant]
     Active Substance: ASPIRIN
  4. ATORVASTATIN [Concomitant]
     Active Substance: ATORVASTATIN
  5. B12 [Concomitant]
  6. BENICAR [Concomitant]
     Active Substance: OLMESARTAN MEDOXOMIL
  7. COPAXONE [Concomitant]
     Active Substance: GLATIRAMER ACETATE
  8. ESCITALOPRAM [Concomitant]
  9. FUROSEMIDE POW [Concomitant]
  10. HYDROCHLOROTHIAZIDE [Concomitant]
     Active Substance: HYDROCHLOROTHIAZIDE
  11. INDAPAMIDE [Suspect]
     Active Substance: INDAPAMIDE

REACTIONS (4)
  - Intestinal operation [None]
  - Depression [None]
  - Muscular weakness [None]
  - Death of relative [None]

NARRATIVE: CASE EVENT DATE: 20240301
